FAERS Safety Report 8902224 (Version 2)
Quarter: 2012Q4

REPORT INFORMATION
  Report Type: 
  Country: JP (occurrence: JP)
  Receive Date: 20121112
  Receipt Date: 20121120
  Transmission Date: 20130627
  Serious: Yes (Other)
  Sender: FDA-Public Use
  Company Number: JP-PFIZER INC-2012281811

PATIENT
  Age: 79 Year
  Sex: Male

DRUGS (2)
  1. LYRICA [Suspect]
     Indication: NUMBNESS
     Dosage: 75 mg, 1x/day
     Route: 048
     Dates: start: 20121025, end: 20121115
  2. LYRICA [Suspect]
     Indication: NEUROPATHIC PAIN

REACTIONS (2)
  - Hallucination, visual [Recovering/Resolving]
  - Diplopia [Recovering/Resolving]
